FAERS Safety Report 16608878 (Version 1)
Quarter: 2019Q3

REPORT INFORMATION
  Report Type: Spontaneous
  Country: US (occurrence: US)
  Receive Date: 20190722
  Receipt Date: 20190722
  Transmission Date: 20191004
  Serious: No
  Sender: FDA-Public Use
  Company Number: US-PFIZER INC-2019309346

PATIENT
  Age: 63 Year
  Sex: Male
  Weight: 74.84 kg

DRUGS (4)
  1. GABAPENTIN. [Suspect]
     Active Substance: GABAPENTIN
     Indication: NEURALGIA
  2. OXYCODONE [Suspect]
     Active Substance: OXYCODONE
     Indication: NEURALGIA
  3. GABAPENTIN. [Suspect]
     Active Substance: GABAPENTIN
     Indication: MUSCLE SPASMS
     Dosage: 600 MG, 3X/DAY
     Route: 048
  4. OXYCODONE [Suspect]
     Active Substance: OXYCODONE
     Indication: MUSCLE SPASMS
     Dosage: 10 MG, 4X/DAY
     Route: 048

REACTIONS (1)
  - Drug ineffective [Unknown]
